FAERS Safety Report 5477281-9 (Version None)
Quarter: 2007Q3

REPORT INFORMATION
  Report Type: 
  Country: None (occurrence: None)
  Receive Date: 20070904
  Receipt Date: 20070713
  Transmission Date: 20080115
  Serious: No
  Sender: FDA-Public Use
  Company Number: PHEH2007US07336

PATIENT
  Age: 56 Year
  Sex: Female
  Weight: 114.3 kg

DRUGS (2)
  1. ENABLEX [Suspect]
     Indication: HYPERTONIC BLADDER
     Dosage: 7.5 MG, QD, ORAL 8 DF, ONCE/SINGLE, ORAL
     Route: 048
     Dates: start: 20070509
  2. CYMBALTA [Concomitant]

REACTIONS (1)
  - ACCIDENTAL OVERDOSE [None]
